FAERS Safety Report 7984928-1 (Version None)
Quarter: 2011Q4

REPORT INFORMATION
  Report Type: 
  Country: None (occurrence: None)
  Receive Date: 20111216
  Receipt Date: 20111019
  Transmission Date: 20120403
  Serious: No
  Sender: FDA-Public Use
  Company Number: US-ALLERGAN-1113801US

PATIENT
  Age: 39 Year
  Sex: Female
  Weight: 40.816 kg

DRUGS (2)
  1. LATISSE [Suspect]
     Indication: GROWTH OF EYELASHES
     Dosage: 2 GTT, QPM
     Route: 061
     Dates: start: 20111018
  2. ARTIFICIAL TEARS                   /90046201/ [Concomitant]
     Dosage: UNK

REACTIONS (1)
  - APPLICATION SITE ERYTHEMA [None]
